FAERS Safety Report 8838254 (Version 2)
Quarter: 2015Q3

REPORT INFORMATION
  Report Type: Report from Study
  Country: US (occurrence: US)
  Receive Date: 20121012
  Receipt Date: 20150821
  Transmission Date: 20151125
  Serious: Yes (Hospitalization, Other)
  Sender: FDA-Public Use
  Company Number: US-ROCHE-1139095

PATIENT
  Sex: Female
  Weight: 40 kg

DRUGS (11)
  1. PROTROPIN [Suspect]
     Active Substance: SOMATREM
     Route: 058
  2. SYNTHROID [Concomitant]
     Active Substance: LEVOTHYROXINE SODIUM
     Route: 065
  3. PROTROPIN [Suspect]
     Active Substance: SOMATREM
     Route: 058
  4. PROTROPIN [Suspect]
     Active Substance: SOMATREM
     Indication: HYPOTHALAMO-PITUITARY DISORDER
     Route: 058
     Dates: start: 199407
  5. PROTROPIN [Suspect]
     Active Substance: SOMATREM
     Route: 058
  6. PROTROPIN [Suspect]
     Active Substance: SOMATREM
     Indication: HYPOPITUITARISM
     Route: 058
  7. PROTROPIN [Suspect]
     Active Substance: SOMATREM
     Route: 058
  8. CORTEF [Suspect]
     Active Substance: HYDROCORTISONE
     Indication: PRODUCT USED FOR UNKNOWN INDICATION
     Dosage: 5 MG IN MORNING AND 2.5 MG EVENING
     Route: 048
  9. PROTROPIN [Suspect]
     Active Substance: SOMATREM
     Route: 058
  10. SYNTHROID [Concomitant]
     Active Substance: LEVOTHYROXINE SODIUM
     Route: 065
  11. DEPAKOTE [Concomitant]
     Active Substance: DIVALPROEX SODIUM
     Route: 065

REACTIONS (10)
  - Abnormal behaviour [Unknown]
  - Fungal infection [Unknown]
  - Ear infection [Unknown]
  - Weight increased [Unknown]
  - Autism [Unknown]
  - Illiteracy [Unknown]
  - Malaise [Unknown]
  - Visual acuity reduced [Unknown]
  - Pneumonia [Unknown]
  - Infection [Unknown]
